FAERS Safety Report 17660534 (Version 1)
Quarter: 2020Q2

REPORT INFORMATION
  Report Type: Spontaneous
  Country: DE (occurrence: DE)
  Receive Date: 20200413
  Receipt Date: 20200413
  Transmission Date: 20200713
  Serious: Yes (Other)
  Sender: FDA-Public Use
  Company Number: DE-PFIZER INC-2020148805

PATIENT

DRUGS (2)
  1. CYTOTEC [Suspect]
     Active Substance: MISOPROSTOL
     Dosage: 4 DF, DAILY (2 DOSES, AT 8:00 AM AND AT 01:00 PM)
     Route: 064
     Dates: start: 20171009, end: 20171009
  2. CYTOTEC [Suspect]
     Active Substance: MISOPROSTOL
     Indication: LABOUR INDUCTION
     Dosage: 1 DF, 1X/DAY (ONE DOSE AT 0:00 AM)
     Route: 064
     Dates: start: 20171008, end: 20171008

REACTIONS (2)
  - Foetal heart rate decreased [Unknown]
  - Foetal exposure during delivery [Unknown]

NARRATIVE: CASE EVENT DATE: 20171008
